FAERS Safety Report 18663279 (Version 2)
Quarter: 2021Q1

REPORT INFORMATION
  Report Type: Spontaneous
  Country: US (occurrence: US)
  Receive Date: 20201224
  Receipt Date: 20210126
  Transmission Date: 20210419
  Serious: Yes (Hospitalization)
  Sender: FDA-Public Use
  Company Number: US-TEVA-2020-US-1860320

PATIENT
  Age: 51 Year
  Sex: Male

DRUGS (2)
  1. HYDROXYCHLOROQUINE [Suspect]
     Active Substance: HYDROXYCHLOROQUINE
     Indication: COVID-19 PNEUMONIA
     Dosage: 800 MILLIGRAM DAILY; ON DAY 1
     Route: 065
  2. HYDROXYCHLOROQUINE [Suspect]
     Active Substance: HYDROXYCHLOROQUINE
     Dosage: 400 MILLIGRAM DAILY; ON DAYS 2?4
     Route: 065

REACTIONS (3)
  - Off label use [Unknown]
  - Acute kidney injury [Not Recovered/Not Resolved]
  - Haemolytic anaemia [Recovered/Resolved]
